FAERS Safety Report 9306201 (Version 1)
Quarter: 2013Q2

REPORT INFORMATION
  Report Type: Spontaneous
  Country: US (occurrence: None)
  Receive Date: 20130429
  Receipt Date: 20130429
  Transmission Date: 20140414
  Serious: Yes (Other)
  Sender: FDA-Public Use
  Company Number: 2013035556

PATIENT
  Age: 57 Year
  Sex: Female

DRUGS (1)
  1. PRIVIGEN (IMMUNE GLOBULIN INTRAVENOUS (HUMAN) 10% LIQUID) [Suspect]
     Indication: IMMUNODEFICIENCY

REACTIONS (3)
  - Sinusitis [None]
  - Kidney infection [None]
  - Bronchitis [None]
